FAERS Safety Report 10356707 (Version 5)
Quarter: 2015Q2

REPORT INFORMATION
  Report Type: Report from Study
  Country: US (occurrence: US)
  Receive Date: 20140801
  Receipt Date: 20150626
  Transmission Date: 20150821
  Serious: Yes (Hospitalization)
  Sender: FDA-Public Use
  Company Number: US-PFIZER INC-2014060349

PATIENT
  Age: 47 Year
  Sex: Male

DRUGS (19)
  1. IRINOTECAN HCL [Suspect]
     Active Substance: IRINOTECAN HYDROCHLORIDE
     Indication: RECTAL CANCER
     Dosage: 360 MG (150 MG/M2), 1 IN 14 D
     Route: 041
     Dates: start: 20131206
  2. IRON SUCROSE [Concomitant]
     Active Substance: IRON SUCROSE
     Indication: HAEMORRHAGE
     Dosage: UNK
     Dates: start: 20140213, end: 20140213
  3. ALEVE [Concomitant]
     Active Substance: NAPROXEN SODIUM
     Indication: PAIN
     Dosage: UNK UNK, AS NEEDED
     Dates: start: 20140116
  4. MIRALAX [Concomitant]
     Active Substance: POLYETHYLENE GLYCOL 3350
     Indication: CONSTIPATION
     Dosage: UNK, AS NEEDED
     Dates: start: 20131204
  5. IRINOTECAN HCL [Suspect]
     Active Substance: IRINOTECAN HYDROCHLORIDE
     Dosage: 360 MG (150 MG/M2), 1 IN 14 D
     Dates: start: 20140102
  6. IRINOTECAN HCL [Suspect]
     Active Substance: IRINOTECAN HYDROCHLORIDE
     Dosage: 350 MG (150 MG/M2), 1 IN 14 D
     Dates: start: 20140130
  7. TAS-102 [Suspect]
     Active Substance: TIPIRACIL\TRIFLURIDINE
     Indication: RECTAL CANCER
     Dosage: 100 MG, DAILY (20 MG/M2), CYCLE 1
     Route: 048
     Dates: start: 20131206, end: 20131210
  8. ATROPINE [Concomitant]
     Active Substance: ATROPINE
     Indication: PREMEDICATION
     Dosage: UNK, AS NEEDED
     Dates: start: 20131206, end: 20140227
  9. TAS-102 [Suspect]
     Active Substance: TIPIRACIL\TRIFLURIDINE
     Dosage: 100 MG, DAILY (20 MG/M2), CYCLE 5
     Route: 048
     Dates: start: 20140130, end: 20140203
  10. TAS-102 [Suspect]
     Active Substance: TIPIRACIL\TRIFLURIDINE
     Dosage: 100 MG, DAILY (20 MG/M2), CYCLE 6
     Route: 048
     Dates: start: 20140213, end: 20140217
  11. PALONOSETRON [Concomitant]
     Active Substance: PALONOSETRON
     Indication: PREMEDICATION
     Dosage: UNK, AS NEEDED
     Dates: start: 20131206, end: 20140227
  12. IRINOTECAN HCL [Suspect]
     Active Substance: IRINOTECAN HYDROCHLORIDE
     Dosage: 360 MG (150 MG/M2), 1 IN 14 D
     Dates: start: 20131220
  13. TAS-102 [Suspect]
     Active Substance: TIPIRACIL\TRIFLURIDINE
     Dosage: 100 MG, DAILY (20 MG/M2), CYCLE 3
     Route: 048
     Dates: start: 20140102, end: 20140106
  14. DEXAMETHASONE. [Concomitant]
     Active Substance: DEXAMETHASONE
     Indication: PREMEDICATION
     Dosage: UNK, AS NEEDED
     Dates: start: 20131206, end: 20140227
  15. IRINOTECAN HCL [Suspect]
     Active Substance: IRINOTECAN HYDROCHLORIDE
     Dosage: 350 MG (150 MG/M2), 1 IN 14 D
     Dates: start: 20140116
  16. IRINOTECAN HCL [Suspect]
     Active Substance: IRINOTECAN HYDROCHLORIDE
     Dosage: 350 MG  (150 MG/M2), 1 IN 14 D
     Dates: start: 20140213
  17. TAS-102 [Suspect]
     Active Substance: TIPIRACIL\TRIFLURIDINE
     Dosage: 100 MG, DAILY (20 MG/M2), CYCLE 2
     Route: 048
     Dates: start: 20131220, end: 20131224
  18. TAS-102 [Suspect]
     Active Substance: TIPIRACIL\TRIFLURIDINE
     Dosage: 100 MG, DAILY (20 MG/M2), CYCLE 4
     Route: 048
     Dates: start: 20140116, end: 20140120
  19. EX-LAX REGULAR STRENGTH STIMULANT LAXATIVE [Concomitant]
     Active Substance: SENNOSIDES
     Indication: CONSTIPATION PROPHYLAXIS
     Dosage: UNK
     Dates: start: 20140116

REACTIONS (5)
  - Enterocolitis [Recovered/Resolved]
  - Dehydration [Recovered/Resolved]
  - Hypokalaemia [Recovered/Resolved]
  - Anaemia [Recovered/Resolved]
  - Febrile neutropenia [Recovered/Resolved]

NARRATIVE: CASE EVENT DATE: 20140219
